FAERS Safety Report 15710779 (Version 1)
Quarter: 2018Q4

REPORT INFORMATION
  Report Type: Spontaneous
  Country: US (occurrence: US)
  Receive Date: 20181211
  Receipt Date: 20181211
  Transmission Date: 20190205
  Serious: Yes (Other)
  Sender: FDA-Public Use
  Company Number: US-SAKK-2018SA336351AA

PATIENT
  Age: 44 Year
  Sex: Female

DRUGS (3)
  1. LEVOTHYROXINE SODIUM. [Suspect]
     Active Substance: LEVOTHYROXINE SODIUM
     Indication: HYPOTHYROIDISM
     Route: 065
  2. ALEMTUZUMAB [Suspect]
     Active Substance: ALEMTUZUMAB
     Indication: MULTIPLE SCLEROSIS
     Route: 041
  3. ALEMTUZUMAB [Suspect]
     Active Substance: ALEMTUZUMAB
     Route: 041

REACTIONS (4)
  - Hypothyroidism [Recovered/Resolved]
  - Basedow^s disease [Unknown]
  - Papillary thyroid cancer [Unknown]
  - Autoimmune thyroiditis [Unknown]
